FAERS Safety Report 4709412-X (Version None)
Quarter: 2005Q3

REPORT INFORMATION
  Report Type: 
  Country: None (occurrence: None)
  Receive Date: 20050705
  Receipt Date: 20050621
  Transmission Date: 20060218
  Serious: Yes (Death)
  Sender: FDA-Public Use
  Company Number: DSA_70672_2005

PATIENT
  Age: 25 Year
  Sex: Male

DRUGS (1)
  1. ROXANOL [Suspect]

REACTIONS (1)
  - OVERDOSE [None]
